FAERS Safety Report 9548149 (Version 5)
Quarter: 2014Q1

REPORT INFORMATION
  Report Type: Report from Study
  Country: JP (occurrence: JP)
  Receive Date: 20130924
  Receipt Date: 20140228
  Transmission Date: 20141002
  Serious: Yes (Death)
  Sender: FDA-Public Use
  Company Number: JP-PFIZER INC-2013182482

PATIENT
  Age: 74 Year
  Sex: Male
  Weight: 53 kg

DRUGS (7)
  1. XALKORI [Suspect]
     Indication: NON-SMALL CELL LUNG CANCER
     Dosage: 250 MG, 2X/DAY
     Route: 048
     Dates: start: 20130227, end: 20130322
  2. OMEGACIN [Concomitant]
     Dosage: 0.3 G, 2X/DAY
     Dates: start: 20130227, end: 20130305
  3. SULBACILLIN [Concomitant]
     Dosage: 1.5 G, 4X/DAY
     Dates: start: 20130306, end: 20130319
  4. GASTER [Concomitant]
     Dosage: 20 MG, 1X/DAY
     Dates: start: 20130306, end: 20130312
  5. BAYASPIRIN [Concomitant]
     Dosage: 100 MG, 1X/DAY
     Route: 048
     Dates: start: 20130302, end: 20130324
  6. ANPLAG [Concomitant]
     Dosage: 100 MG, 3X/DAY
     Route: 048
     Dates: start: 20130302, end: 20130324
  7. PANTOSIN [Concomitant]
     Dosage: 1 G, 3X/DAY
     Route: 048
     Dates: start: 20130302, end: 20130324

REACTIONS (2)
  - Pneumonia [Fatal]
  - General physical health deterioration [Fatal]
